FAERS Safety Report 6041220-2 (Version None)
Quarter: 2009Q1

REPORT INFORMATION
  Report Type: 
  Country: None (occurrence: None)
  Receive Date: 20090116
  Receipt Date: 20081029
  Transmission Date: 20090719
  Serious: No
  Sender: FDA-Public Use
  Company Number: US-BRISTOL-MYERS SQUIBB COMPANY-14339584

PATIENT
  Age: 5 Decade
  Sex: Female

DRUGS (4)
  1. ABILIFY [Suspect]
     Indication: BORDERLINE PERSONALITY DISORDER
     Route: 048
     Dates: start: 20070601, end: 20071101
  2. ABILIFY [Suspect]
     Indication: AFFECTIVE DISORDER
     Route: 048
     Dates: start: 20070601, end: 20071101
  3. KLONOPIN [Concomitant]
  4. CYMBALTA [Concomitant]

REACTIONS (1)
  - ALOPECIA [None]
